FAERS Safety Report 16844980 (Version 1)
Quarter: 2019Q3

REPORT INFORMATION
  Report Type: Spontaneous
  Country: US (occurrence: US)
  Receive Date: 20190924
  Receipt Date: 20190924
  Transmission Date: 20191005
  Serious: No
  Sender: FDA-Public Use
  Company Number: US-PFIZER INC-2019407464

PATIENT
  Age: 80 Year
  Sex: Female
  Weight: 116.5 kg

DRUGS (7)
  1. FLUTICASONE. [Concomitant]
     Active Substance: FLUTICASONE
     Indication: HYPERSENSITIVITY
     Dosage: 50 UG, 2X/DAY(50MCG/ACT NASAL SPRAY INTO NOSTRILS TWICE DAILY   )
     Route: 045
     Dates: start: 1982
  2. XELJANZ [Suspect]
     Active Substance: TOFACITINIB CITRATE
     Indication: RHEUMATOID ARTHRITIS
     Dosage: 5 MG, 1X/DAY
     Route: 048
     Dates: start: 2017
  3. LASIX [Concomitant]
     Active Substance: FUROSEMIDE
     Indication: RENAL DISORDER
     Dosage: 40 MG, 1X/DAY
     Route: 048
  4. VITAMIN D3 [Concomitant]
     Active Substance: CHOLECALCIFEROL
     Indication: SUPPLEMENTATION THERAPY
     Dosage: 1000 IU, 1X/DAY(TAKEN ONCE DAILY IN THE MORNING   )
     Dates: start: 2014
  5. COENZYME Q10 [Concomitant]
     Active Substance: UBIDECARENONE
     Indication: SUPPLEMENTATION THERAPY
     Dosage: 10 MG, 1X/DAY
     Route: 048
  6. VITAMIN B COMPLEX [Concomitant]
     Active Substance: CYANOCOBALAMIN\DEXPANTHENOL\NIACINAMIDE\PYRIDOXINE HYDROCHLORIDE\RIBOFLAVIN 5^-PHOSPHATE SODIUM\THIAMINE HYDROCHLORIDE\VITAMIN B COMPLEX
     Indication: ENERGY INCREASED
     Dosage: UNK
     Dates: start: 201908
  7. PREDNISONE. [Concomitant]
     Active Substance: PREDNISONE
     Indication: RHEUMATOID ARTHRITIS
     Dosage: 5 MG, 1X/DAY
     Route: 048

REACTIONS (2)
  - Off label use [Not Recovered/Not Resolved]
  - Gout [Not Recovered/Not Resolved]

NARRATIVE: CASE EVENT DATE: 2017
